FAERS Safety Report 21663287 (Version 2)
Quarter: 2022Q4

REPORT INFORMATION
  Report Type: Spontaneous
  Country: US (occurrence: US)
  Receive Date: 20221130
  Receipt Date: 20221223
  Transmission Date: 20230112
  Serious: No
  Sender: FDA-Public Use
  Company Number: US-BRISTOL-MYERS SQUIBB COMPANY-2022-145619

PATIENT
  Age: 77 Year
  Sex: Female

DRUGS (3)
  1. REVLIMID [Suspect]
     Active Substance: LENALIDOMIDE
     Indication: Immune thrombocytopenia
     Route: 048
     Dates: start: 20221028
  2. REVLIMID [Suspect]
     Active Substance: LENALIDOMIDE
     Indication: Diffuse large B-cell lymphoma
     Route: 048
     Dates: start: 202211, end: 20221219
  3. REVLIMID [Suspect]
     Active Substance: LENALIDOMIDE
     Indication: Prophylaxis

REACTIONS (5)
  - Feeling abnormal [Unknown]
  - Feeling cold [Unknown]
  - Off label use [Unknown]
  - Drug intolerance [Unknown]
  - Platelet count decreased [Unknown]
